FAERS Safety Report 18540204 (Version 4)
Quarter: 2021Q1

REPORT INFORMATION
  Report Type: Spontaneous
  Country: US (occurrence: US)
  Receive Date: 20201124
  Receipt Date: 20210104
  Transmission Date: 20210419
  Serious: Yes (Hospitalization)
  Sender: FDA-Public Use
  Company Number: US-PFIZER INC-2020458895

PATIENT
  Age: 73 Year
  Sex: Male
  Weight: 90.7 kg

DRUGS (2)
  1. DOXYCYCLINE HYCLATE. [Suspect]
     Active Substance: DOXYCYCLINE HYCLATE
     Indication: CELLULITIS
     Dosage: 20 MG, 1X/DAY
     Dates: start: 20201115
  2. CYCLOSPORINE. [Suspect]
     Active Substance: CYCLOSPORINE
     Indication: PSORIASIS
     Dosage: UNK
     Dates: start: 20201113

REACTIONS (2)
  - Therapeutic product effect incomplete [Unknown]
  - Arthritis [Unknown]
